FAERS Safety Report 5810338-9 (Version None)
Quarter: 2008Q3

REPORT INFORMATION
  Report Type: 
  Country: None (occurrence: None)
  Receive Date: 20080715
  Receipt Date: 20080624
  Transmission Date: 20090109
  Serious: No
  Sender: FDA-Public Use
  Company Number: A0725605A

PATIENT
  Age: 35 Year
  Sex: Female

DRUGS (2)
  1. IMITREX [Suspect]
     Indication: MIGRAINE
     Dosage: 25MG AS REQUIRED
     Route: 048
     Dates: end: 20080324
  2. MAXALT [Concomitant]

REACTIONS (5)
  - DIZZINESS [None]
  - DRUG INEFFECTIVE [None]
  - NAUSEA [None]
  - PHARMACEUTICAL PRODUCT COMPLAINT [None]
  - VOMITING [None]
